FAERS Safety Report 7939159-8 (Version None)
Quarter: 2011Q4

REPORT INFORMATION
  Report Type: 
  Country: None (occurrence: None)
  Receive Date: 20111124
  Receipt Date: 20111115
  Transmission Date: 20120403
  Serious: Yes (Other)
  Sender: FDA-Public Use
  Company Number: US-ROCHE-1013875

PATIENT
  Age: 65 Year
  Sex: Male

DRUGS (1)
  1. RANIBIZUMAB [Suspect]
     Indication: AGE-RELATED MACULAR DEGENERATION
     Route: 050

REACTIONS (5)
  - HYPOTONY OF EYE [None]
  - CILIARY BODY DEGENERATION [None]
  - EYE PAIN [None]
  - CORNEAL OEDEMA [None]
  - CHOROIDAL DETACHMENT [None]
